FAERS Safety Report 18170004 (Version 1)
Quarter: 2020Q3

REPORT INFORMATION
  Report Type: Spontaneous
  Country: CA (occurrence: CA)
  Receive Date: 20200819
  Receipt Date: 20200819
  Transmission Date: 20201103
  Serious: Yes (Life-Threatening, Hospitalization)
  Sender: FDA-Public Use
  Company Number: CA-ACCORD-195809

PATIENT
  Age: 3 Year
  Sex: Female
  Weight: 16 kg

DRUGS (7)
  1. DEXAMETHASONE. [Concomitant]
     Active Substance: DEXAMETHASONE
     Route: 014
  2. METHOTREXATE. [Concomitant]
     Active Substance: METHOTREXATE
  3. DAPSONE. [Concomitant]
     Active Substance: DAPSONE
  4. MERCAPTOPURINE/MERCAPTOPURINE ANHYDROUS [Concomitant]
     Active Substance: MERCAPTOPURINE
  5. METHOTREXATE. [Suspect]
     Active Substance: METHOTREXATE
     Indication: ACUTE LYMPHOCYTIC LEUKAEMIA
     Dosage: ONCE
     Route: 037
  6. VINCRISTINE [Concomitant]
     Active Substance: VINCRISTINE
  7. PEGASYS [Concomitant]
     Active Substance: PEGINTERFERON ALFA-2A

REACTIONS (3)
  - Cough [Recovering/Resolving]
  - Status epilepticus [Recovering/Resolving]
  - Pyrexia [Recovering/Resolving]
